FAERS Safety Report 9229886 (Version 2)
Quarter: 2013Q2

REPORT INFORMATION
  Report Type: Report from Study
  Country: US (occurrence: US)
  Receive Date: 20130415
  Receipt Date: 20130514
  Transmission Date: 20140414
  Serious: Yes (Death)
  Sender: FDA-Public Use
  Company Number: US-MERCK-1304USA005679

PATIENT
  Age: 1 Year
  Sex: Male
  Weight: 10.7 kg

DRUGS (1)
  1. PEGINTERFERON ALFA-2B [Suspect]
     Indication: NEUROFIBROMATOSIS
     Dosage: 31 MICROGRAM, QW
     Route: 058
     Dates: start: 20130301

REACTIONS (1)
  - Sudden death [Fatal]
